FAERS Safety Report 16386842 (Version 2)
Quarter: 2022Q1

REPORT INFORMATION
  Report Type: Spontaneous
  Country: CH (occurrence: CH)
  Receive Date: 20190604
  Receipt Date: 20220203
  Transmission Date: 20220423
  Serious: Yes (Hospitalization, Other)
  Sender: FDA-Public Use
  Company Number: CH-SM-2019-13507

PATIENT
  Age: 78 Year
  Sex: Female

DRUGS (18)
  1. AMOXICILLIN\CLAVULANATE POTASSIUM [Suspect]
     Active Substance: AMOXICILLIN\CLAVULANATE POTASSIUM
     Indication: Intervertebral discitis
     Dosage: 6.6 GRAM DAILY;
     Route: 042
     Dates: start: 20190123, end: 20190206
  2. LEVOFLOXACIN [Suspect]
     Active Substance: LEVOFLOXACIN
     Indication: Intervertebral discitis
     Dosage: 500 MILLIGRAM DAILY;
     Route: 048
     Dates: start: 20190207, end: 20190220
  3. VANCOCIN [Suspect]
     Active Substance: VANCOMYCIN HYDROCHLORIDE
     Indication: Intervertebral discitis
     Dosage: 1000 MILLIGRAM DAILY;
     Route: 042
     Dates: start: 20190309, end: 20190315
  4. DOXYCYCLINE [Suspect]
     Active Substance: DOXYCYCLINE
     Indication: Intervertebral discitis
     Dosage: 200 MILLIGRAM DAILY;
     Route: 048
     Dates: start: 20190330, end: 20190420
  5. RIFAMPIN [Suspect]
     Active Substance: RIFAMPIN
     Indication: Intervertebral discitis
     Dosage: 900 MILLIGRAM DAILY;
     Route: 048
     Dates: start: 20190207, end: 20190220
  6. MEROPENEM [Suspect]
     Active Substance: MEROPENEM
     Indication: Intervertebral discitis
     Dosage: 3 GRAM DAILY;
     Route: 042
     Dates: start: 20190309, end: 20190315
  7. PIPERACILLIN AND TAZOBACTAM [Suspect]
     Active Substance: PIPERACILLIN SODIUM\TAZOBACTAM SODIUM
     Indication: Intervertebral discitis
     Dosage: 13.5 GRAM DAILY;
     Route: 042
     Dates: start: 20190315, end: 20190329
  8. AMLODIPINE [Concomitant]
     Active Substance: AMLODIPINE BESYLATE
     Dosage: 5 MILLIGRAM DAILY;
     Route: 048
  9. CALCIUM CARBONATE\CHOLECALCIFEROL [Concomitant]
     Active Substance: CALCIUM CARBONATE\CHOLECALCIFEROL
     Dosage: 1 DOSAGE FORMS DAILY;
     Route: 048
  10. DUPHALAC [Concomitant]
     Active Substance: LACTULOSE
     Dosage: 15 ML DAILY;
     Route: 048
  11. METAMIZOL [Concomitant]
     Active Substance: METAMIZOLE SODIUM
     Dosage: 8 DOSAGE FORMS DAILY;
     Route: 048
  12. OXYCONTIN [Concomitant]
     Active Substance: OXYCODONE HYDROCHLORIDE
     Dosage: 20 MILLIGRAM DAILY;
     Route: 048
  13. PREGABALIN [Concomitant]
     Active Substance: PREGABALIN
     Dosage: 25 MILLIGRAM DAILY;
     Route: 048
  14. PREDNISOLONE [Concomitant]
     Active Substance: PREDNISOLONE
     Dosage: 2.5 MILLIGRAM DAILY;
     Route: 048
  15. MINERALS\VITAMINS [Concomitant]
     Active Substance: MINERALS\VITAMINS
     Dosage: AS NECESSARY
     Route: 048
  16. PANTOPRAZOLE SODIUM [Concomitant]
     Active Substance: PANTOPRAZOLE SODIUM
     Dosage: 40 MILLIGRAM DAILY;
     Route: 048
  17. ENOXAPARIN SODIUM [Concomitant]
     Active Substance: ENOXAPARIN SODIUM
     Dosage: 40 MILLIGRAM DAILY;
     Route: 059
  18. PRIMPERAN [Concomitant]
     Active Substance: METOCLOPRAMIDE HYDROCHLORIDE
     Dosage: 15 MILLIGRAM DAILY;
     Route: 048

REACTIONS (3)
  - Drug-induced liver injury [Recovering/Resolving]
  - Jaundice [Recovering/Resolving]
  - Hepatic enzyme increased [Recovering/Resolving]

NARRATIVE: CASE EVENT DATE: 20190307
